FAERS Safety Report 21830565 (Version 1)
Quarter: 2023Q1

REPORT INFORMATION
  Report Type: Spontaneous
  Country: US (occurrence: US)
  Receive Date: 20230106
  Receipt Date: 20230106
  Transmission Date: 20230418
  Serious: Yes (Hospitalization)
  Sender: FDA-Public Use
  Company Number: US-TORRENT-00012150

PATIENT
  Age: 58 Year
  Sex: Female

DRUGS (2)
  1. CITALOPRAM [Suspect]
     Active Substance: CITALOPRAM HYDROBROMIDE
     Indication: Depressive symptom
     Dosage: UNKNOWN
     Route: 065
  2. PALIPERIDONE [Suspect]
     Active Substance: PALIPERIDONE
     Indication: Depressive symptom
     Dosage: UNKNOWN
     Route: 048

REACTIONS (4)
  - Cognitive disorder [Unknown]
  - Catatonia [Recovered/Resolved]
  - Abnormal behaviour [Unknown]
  - Incontinence [Unknown]
